FAERS Safety Report 8178995 (Version 2)
Quarter: 2013Q1

REPORT INFORMATION
  Report Type: Spontaneous
  Country: US (occurrence: None)
  Receive Date: 20110929
  Receipt Date: 20130125
  Transmission Date: 20140127
  Serious: Yes (Hospitalization)
  Sender: FDA-Public Use
  Company Number: AUR-APL-2011-05216

PATIENT
  Age: 71 Year
  Sex: Female
  Weight: 82.5 kg

DRUGS (4)
  1. METFORMIN HYDROCHLORIDE [Suspect]
     Indication: DIABETES MELLITUS
     Dates: end: 2011
  2. AMLODIPINE BESILATE (AMLODIPINE BESILATE) [Concomitant]
  3. SYNTHROID (LEVOTHYROXINE SODIUM) [Concomitant]
  4. ATIVAN (LORAZEPAM) [Concomitant]

REACTIONS (1)
  - Drug hypersensitivity [None]
